FAERS Safety Report 14398660 (Version 5)
Quarter: 2018Q1

REPORT INFORMATION
  Report Type: Other
  Country: GB (occurrence: GB)
  Receive Date: 20180117
  Receipt Date: 20180330
  Transmission Date: 20180509
  Serious: Yes (Life-Threatening, Hospitalization, Other)
  Sender: FDA-Public Use
  Company Number: GB-LUPIN PHARMACEUTICALS INC.-2018-00076

PATIENT
  Age: 47 Year
  Sex: Female

DRUGS (4)
  1. ABACAVIR AND LAMIVUDINE TABLETS [Suspect]
     Active Substance: ABACAVIR\LAMIVUDINE
     Indication: HIV INFECTION
     Dosage: 1 DF, QD
     Route: 048
     Dates: start: 20170501, end: 20171216
  2. EFAVIRENZ. [Suspect]
     Active Substance: EFAVIRENZ
     Indication: HIV INFECTION
     Dosage: 600 MG, QD
     Route: 048
     Dates: start: 20170501, end: 20170516
  3. ABACAVIR AND LAMIVUDINE TABLETS [Suspect]
     Active Substance: ABACAVIR\LAMIVUDINE
     Dosage: UNK
     Route: 065
  4. EFAVIRENZ. [Suspect]
     Active Substance: EFAVIRENZ
     Dosage: UNK
     Route: 065

REACTIONS (2)
  - Acute hepatic failure [Not Recovered/Not Resolved]
  - Product substitution issue [Unknown]

NARRATIVE: CASE EVENT DATE: 20171107
